FAERS Safety Report 11539219 (Version 1)
Quarter: 2015Q3

REPORT INFORMATION
  Report Type: Spontaneous
  Country: US (occurrence: US)
  Receive Date: 20150923
  Receipt Date: 20150923
  Transmission Date: 20151125
  Serious: No
  Sender: FDA-Public Use
  Company Number: US-TEVA-553125USA

PATIENT
  Age: 59 Year
  Sex: Female

DRUGS (3)
  1. NEFAZODONE [Suspect]
     Active Substance: NEFAZODONE
     Indication: DEPRESSION
     Dosage: 250 MILLIGRAM DAILY; AT BEDTIME
     Route: 048
     Dates: start: 1990
  2. ADCIRCA [Suspect]
     Active Substance: TADALAFIL
     Route: 065
     Dates: start: 20150318
  3. XANAX [Concomitant]
     Active Substance: ALPRAZOLAM

REACTIONS (4)
  - Nausea [Unknown]
  - Dizziness [Unknown]
  - Pulmonary mass [Unknown]
  - Vomiting [Unknown]

NARRATIVE: CASE EVENT DATE: 20150318
